FAERS Safety Report 13398275 (Version 2)
Quarter: 2017Q3

REPORT INFORMATION
  Report Type: Spontaneous
  Country: US (occurrence: US)
  Receive Date: 20170403
  Receipt Date: 20170829
  Transmission Date: 20171127
  Serious: No
  Sender: FDA-Public Use
  Company Number: US-ELI_LILLY_AND_COMPANY-US201703008892

PATIENT
  Age: 30 Year
  Sex: Female

DRUGS (4)
  1. HUMULIN N [Suspect]
     Active Substance: INSULIN HUMAN
     Dosage: 12 U, EACH EVENING
     Route: 058
     Dates: start: 20170318, end: 20170321
  2. HUMULIN N [Suspect]
     Active Substance: INSULIN HUMAN
     Dosage: 14 U, EACH EVENING
     Route: 058
     Dates: start: 20170319, end: 20170321
  3. HUMULIN N [Suspect]
     Active Substance: INSULIN HUMAN
     Dosage: 16 U, EACH EVENING
     Route: 058
     Dates: start: 20170320, end: 20170321
  4. HUMULIN N [Suspect]
     Active Substance: INSULIN HUMAN
     Indication: GESTATIONAL DIABETES
     Dosage: 10 U, EACH EVENING
     Route: 058
     Dates: start: 20170317, end: 20170321

REACTIONS (3)
  - Expired product administered [Recovered/Resolved]
  - Maternal exposure during pregnancy [Not Recovered/Not Resolved]
  - Blood glucose increased [Recovered/Resolved]

NARRATIVE: CASE EVENT DATE: 20170317
